FAERS Safety Report 7984061-9 (Version None)
Quarter: 2011Q4

REPORT INFORMATION
  Report Type: 
  Country: None (occurrence: None)
  Receive Date: 20111216
  Receipt Date: 20111213
  Transmission Date: 20120403
  Serious: Yes (Life-Threatening, Hospitalization)
  Sender: FDA-Public Use
  Company Number: DE-PFIZER INC-K201100268

PATIENT
  Age: 67 Year
  Sex: Female
  Weight: 93 kg

DRUGS (12)
  1. AMIODARONE HCL [Suspect]
     Indication: ATRIAL FIBRILLATION
     Dosage: 600 MG, 1X/DAY
     Route: 048
     Dates: start: 20101103, end: 20101109
  2. RAMIPRIL [Suspect]
     Dosage: 2.5 MG, 1X/DAY
     Route: 048
     Dates: start: 20111005
  3. IBUPROFEN [Suspect]
     Indication: SPINAL OSTEOARTHRITIS
     Dosage: 400 MG, SINGLE
     Route: 048
     Dates: start: 20101102, end: 20101102
  4. IBUPROFEN TABLETS [Suspect]
     Indication: SPINAL OSTEOARTHRITIS
     Dosage: 400 MG, SINGLE
     Route: 048
     Dates: start: 20101103, end: 20101103
  5. RAMIPRIL [Suspect]
     Dosage: 2.5 MG, 2X/DAY
     Route: 048
     Dates: start: 20101105, end: 20101109
  6. DICLOFENAC [Suspect]
     Indication: SPINAL OSTEOARTHRITIS
     Dosage: UNK
     Route: 048
     Dates: end: 20101102
  7. RAMIPRIL [Suspect]
     Dosage: 2.5 MG, 2X/DAY
     Route: 048
     Dates: start: 20100923, end: 20101102
  8. AMLODIPINE [Suspect]
     Indication: HYPERTENSION
     Dosage: 5-10 MG, QD
     Route: 048
     Dates: start: 20100923, end: 20101103
  9. AMLODIPINE [Suspect]
     Dosage: 5-10 MG, QD
     Route: 048
     Dates: start: 20101105, end: 20101109
  10. RAMIPRIL [Suspect]
     Dosage: 2.5 MG, 1X/DAY
     Route: 048
     Dates: start: 20101118, end: 20101129
  11. RAMIPRIL [Suspect]
     Dosage: 2.5 MG, 1X/DAY
     Route: 048
     Dates: end: 20111003
  12. IBUPROFEN [Suspect]
     Dosage: 400 MG, SINGLE
     Dates: start: 20101103, end: 20101103

REACTIONS (5)
  - BLOOD CREATININE INCREASED [None]
  - BLOOD UREA INCREASED [None]
  - CHEST PAIN [None]
  - RENAL FAILURE ACUTE [None]
  - TUBULOINTERSTITIAL NEPHRITIS [None]
